FAERS Safety Report 7773486-2 (Version None)
Quarter: 2011Q3

REPORT INFORMATION
  Report Type: 
  Country: None (occurrence: None)
  Receive Date: 20110922
  Receipt Date: 20110916
  Transmission Date: 20111222
  Serious: Yes (Hospitalization)
  Sender: FDA-Public Use
  Company Number: US-ABBOTT-11P-163-0851131-00

PATIENT
  Sex: Female

DRUGS (5)
  1. HUMIRA [Suspect]
     Indication: HIDRADENITIS
     Dosage: LOADING DOSE ONLY
     Dates: start: 20110827, end: 20110827
  2. MAXALT [Concomitant]
     Indication: MIGRAINE
  3. AMITRIPTYLINE HCL [Concomitant]
     Indication: MIGRAINE
  4. HUMIRA [Suspect]
  5. ZONISAMIDE [Concomitant]
     Indication: PRODUCT USED FOR UNKNOWN INDICATION

REACTIONS (10)
  - DROOLING [None]
  - DYSARTHRIA [None]
  - HYPOAESTHESIA [None]
  - FEELING ABNORMAL [None]
  - DEJA VU [None]
  - AGEUSIA [None]
  - ORAL HERPES [None]
  - DIZZINESS [None]
  - HYPOAESTHESIA ORAL [None]
  - BACK DISORDER [None]
